FAERS Safety Report 20371732 (Version 2)
Quarter: 2022Q1

REPORT INFORMATION
  Report Type: Report from Study
  Country: US (occurrence: None)
  Receive Date: 20220124
  Receipt Date: 20220315
  Transmission Date: 20220423
  Serious: Yes (Other)
  Sender: FDA-Public Use
  Company Number: 2022A035574

PATIENT
  Sex: Female

DRUGS (1)
  1. CALQUENCE [Suspect]
     Active Substance: ACALABRUTINIB
     Route: 048

REACTIONS (7)
  - Tumour lysis syndrome [Not Recovered/Not Resolved]
  - Haemorrhage [Recovered/Resolved]
  - Lymphadenopathy [Recovered/Resolved]
  - Parosmia [Recovered/Resolved]
  - Pain [Not Recovered/Not Resolved]
  - Gallbladder disorder [Not Recovered/Not Resolved]
  - Duodenogastric reflux [Not Recovered/Not Resolved]
